FAERS Safety Report 4396718-X (Version None)
Quarter: 2004Q3

REPORT INFORMATION
  Report Type: 
  Country: None (occurrence: None)
  Receive Date: 20040713
  Receipt Date: 20040713
  Transmission Date: 20050211
  Serious: Yes (Other)
  Sender: FDA-Public Use
  Company Number: None

PATIENT
  Age: 50 Year
  Sex: Male
  Weight: 128.8 kg

DRUGS (4)
  1. GATIFLOXACIN [Suspect]
     Indication: POSTOPERATIVE CARE
     Dosage: 400 MG, 400 MG QD ORAL
     Route: 048
     Dates: start: 20040412
  2. GATIFLOXACIN [Suspect]
     Indication: URINARY TRACT DISORDER
     Dosage: 400 MG, 400 MG QD ORAL
     Route: 048
     Dates: start: 20040412
  3. ACETAMINOPHEN [Concomitant]
  4. CODEINE [Concomitant]

REACTIONS (1)
  - RASH [None]
